FAERS Safety Report 17568050 (Version 1)
Quarter: 2020Q1

REPORT INFORMATION
  Report Type: Spontaneous
  Country: DE (occurrence: DE)
  Receive Date: 20200320
  Receipt Date: 20200320
  Transmission Date: 20200409
  Serious: Yes (Hospitalization, Other)
  Sender: FDA-Public Use
  Company Number: NVSC2020DE075972

PATIENT
  Sex: Female
  Weight: 63.9 kg

DRUGS (7)
  1. METAMIZOLE [Concomitant]
     Active Substance: METAMIZOLE
     Indication: PRODUCT USED FOR UNKNOWN INDICATION
     Dosage: 500 MG (IF REQUIRED AT PAIN, MAXIMUM OF 4 TABLETS PER DAY EVERY 6 HOURS
     Route: 048
  2. FUROSEMIDE. [Concomitant]
     Active Substance: FUROSEMIDE
     Indication: PRODUCT USED FOR UNKNOWN INDICATION
     Dosage: 10 MG, QD (QUARTER A TABLET (1/4) IN THE MORNING)
     Route: 048
  3. OMEPRAZOLE. [Concomitant]
     Active Substance: OMEPRAZOLE
     Indication: PRODUCT USED FOR UNKNOWN INDICATION
     Dosage: 20 MG, QD (ONE DOSAGE UNIT IN THE MORNING
     Route: 048
  4. APIXABAN [Suspect]
     Active Substance: APIXABAN
     Indication: CEREBROVASCULAR ACCIDENT PROPHYLAXIS
     Dosage: 5 MG, QD (2.5 MILLIGRAM, BID)
     Route: 048
     Dates: start: 20180201, end: 20191210
  5. METOPROLOL. [Suspect]
     Active Substance: METOPROLOL
     Indication: PRODUCT USED FOR UNKNOWN INDICATION
     Dosage: 23.75 MG, QD (ONE DOSAGE UNIT IN THE MORNING )
     Route: 048
  6. ZOPICLONE [Concomitant]
     Active Substance: ZOPICLONE
     Indication: PRODUCT USED FOR UNKNOWN INDICATION
     Dosage: 1 DF (HALF A TABLET OF 7.5 MILLIGRAM IF REQUIRED FOR TROUBLE FALLING ASLEEP)
     Route: 048
  7. LOSARTAN. [Concomitant]
     Active Substance: LOSARTAN
     Indication: PRODUCT USED FOR UNKNOWN INDICATION
     Dosage: 50 MG, QD (ONE DOSAGE UNIT IN THE MORNING)
     Route: 048

REACTIONS (3)
  - Type 2 diabetes mellitus [Unknown]
  - Hypertension [Unknown]
  - Cerebral haemorrhage [Unknown]

NARRATIVE: CASE EVENT DATE: 20191209
